FAERS Safety Report 8602380 (Version 7)
Quarter: 2013Q4

REPORT INFORMATION
  Report Type: Report from Study
  Country: GB (occurrence: GB)
  Receive Date: 20120607
  Receipt Date: 20131003
  Transmission Date: 20140711
  Serious: Yes (Hospitalization, Other)
  Sender: FDA-Public Use
  Company Number: GB-JNJFOC-20120520750

PATIENT
  Age: 59 Year
  Sex: Female
  Weight: 81 kg

DRUGS (31)
  1. REMICADE [Suspect]
     Indication: COLITIS ULCERATIVE
     Route: 042
  2. REMICADE [Suspect]
     Indication: COLITIS ULCERATIVE
     Route: 042
     Dates: start: 20101118
  3. DEXAMETHASONE [Suspect]
     Indication: BRAIN OEDEMA
     Dosage: ^QDS^
     Route: 065
     Dates: start: 20111126
  4. DEXAMETHASONE [Suspect]
     Indication: BRAIN OEDEMA
     Route: 065
  5. DEXAMETHASONE [Suspect]
     Indication: BRAIN OEDEMA
     Dosage: WEENING OFF
     Route: 065
     Dates: start: 20101126
  6. DEXAMETHASONE [Suspect]
     Indication: CENTRAL NERVOUS SYSTEM LESION
     Dosage: WEENING OFF
     Route: 065
     Dates: start: 20101126
  7. DEXAMETHASONE [Suspect]
     Indication: CENTRAL NERVOUS SYSTEM LESION
     Dosage: ^QDS^
     Route: 065
     Dates: start: 20111126
  8. DEXAMETHASONE [Suspect]
     Indication: CENTRAL NERVOUS SYSTEM LESION
     Route: 065
  9. DEXAMETHASONE [Suspect]
     Indication: HEADACHE
     Dosage: WEENING OFF
     Route: 065
     Dates: start: 20101126
  10. DEXAMETHASONE [Suspect]
     Indication: HEADACHE
     Route: 065
  11. DEXAMETHASONE [Suspect]
     Indication: HEADACHE
     Dosage: ^QDS^
     Route: 065
     Dates: start: 20111126
  12. DEXAMETHASONE [Suspect]
     Indication: VASCULITIS CEREBRAL
     Dosage: ^QDS^
     Route: 065
     Dates: start: 20111126
  13. DEXAMETHASONE [Suspect]
     Indication: VASCULITIS CEREBRAL
     Route: 065
  14. DEXAMETHASONE [Suspect]
     Indication: VASCULITIS CEREBRAL
     Dosage: WEENING OFF
     Route: 065
     Dates: start: 20101126
  15. CALCICHEW D3 [Concomitant]
     Indication: OSTEOPENIA
     Route: 048
     Dates: start: 2009
  16. CALCICHEW D3 [Concomitant]
     Indication: OSTEOPOROSIS
     Route: 048
     Dates: start: 2009
  17. PENTASA [Concomitant]
     Indication: COLITIS ULCERATIVE
     Route: 048
  18. PRAZEPAM [Concomitant]
     Route: 065
  19. FUROSEMIDE [Concomitant]
     Indication: DIURETIC THERAPY
     Route: 048
     Dates: start: 20110129, end: 20110202
  20. OMEPRAZOLE [Concomitant]
     Indication: GASTROINTESTINAL DISORDER THERAPY
     Route: 048
  21. OMEPRAZOLE [Concomitant]
     Indication: GASTROINTESTINAL DISORDER THERAPY
     Route: 048
     Dates: start: 20101129, end: 20101202
  22. PARACETAMOL [Concomitant]
     Indication: ANALGESIC THERAPY
     Route: 048
  23. COCODAMOL [Concomitant]
     Indication: ANALGESIC THERAPY
     Dosage: 30/500
     Route: 048
     Dates: start: 20101111, end: 20101120
  24. ENOXAPARIN [Concomitant]
     Indication: THROMBOSIS PROPHYLAXIS
     Route: 058
     Dates: start: 20101111, end: 20101203
  25. HYDROCORTISONE [Concomitant]
     Indication: COLITIS ULCERATIVE
     Route: 042
     Dates: start: 20101111, end: 20101122
  26. MOVICAL [Concomitant]
     Indication: CONSTIPATION
     Route: 048
     Dates: start: 20101116, end: 20101119
  27. CORTIFOAM [Concomitant]
     Indication: COLITIS ULCERATIVE
     Route: 054
     Dates: start: 20101115, end: 20101129
  28. PENTASA [Concomitant]
     Indication: COLITIS ULCERATIVE
     Route: 054
     Dates: start: 20101117, end: 20101128
  29. CYCLIZINE [Concomitant]
     Indication: NAUSEA
     Route: 048
     Dates: start: 20101113, end: 20101113
  30. ORAMORPH [Concomitant]
     Indication: HEADACHE
     Dosage: DOSE: 5-10 ML
     Route: 048
     Dates: start: 20101117, end: 20101202
  31. CYCLIZINE [Concomitant]
     Indication: NAUSEA
     Route: 042
     Dates: start: 20101113, end: 20101113

REACTIONS (10)
  - Central nervous system lesion [Recovered/Resolved]
  - Cerebral haemorrhage [Unknown]
  - Spinal compression fracture [Recovering/Resolving]
  - Bronchopulmonary aspergillosis [Recovered/Resolved]
  - Respiratory moniliasis [Recovered/Resolved]
  - Bladder disorder [Recovered/Resolved]
  - Muscular weakness [Recovered/Resolved]
  - Colitis ulcerative [Unknown]
  - Pneumothorax [Unknown]
  - Hydronephrosis [Recovering/Resolving]
